FAERS Safety Report 13660463 (Version 1)
Quarter: 2017Q2

REPORT INFORMATION
  Report Type: Spontaneous
  Country: US (occurrence: US)
  Receive Date: 20170615
  Receipt Date: 20170615
  Transmission Date: 20170830
  Serious: No
  Sender: FDA-Public Use
  Company Number: None

PATIENT
  Age: 45 Year
  Sex: Female
  Weight: 85.5 kg

DRUGS (16)
  1. NORTRIPTYLINE HCL 25MG CAP [Suspect]
     Active Substance: NORTRIPTYLINE HYDROCHLORIDE
     Indication: NEUROPATHY PERIPHERAL
     Dosage: ?          QUANTITY:2 CAPSULE(S);?
     Route: 048
     Dates: start: 20100826, end: 20110131
  2. ADDERALL EX [Concomitant]
  3. HIGH DENSITY FOAM ROLLER [Concomitant]
  4. TENS UNIT [Concomitant]
  5. CERVICAL HOMETRAC TRACTION DEVICE [Concomitant]
  6. NORTRIPTYLINE HCL 25MG CAP [Suspect]
     Active Substance: NORTRIPTYLINE HYDROCHLORIDE
     Indication: MIGRAINE
     Dosage: ?          QUANTITY:2 CAPSULE(S);?
     Route: 048
     Dates: start: 20100826, end: 20110131
  7. ELMIRON [Concomitant]
     Active Substance: PENTOSAN POLYSULFATE SODIUM
  8. DONATOL [Concomitant]
  9. EXCEDRIN MIGRAINE [Concomitant]
     Active Substance: ACETAMINOPHEN\ASPIRIN\CAFFEINE
  10. VITAMIN B12 [Concomitant]
     Active Substance: CYANOCOBALAMIN
  11. CLINICAL MASSAGE AND PHYSICAL THERAPY [Concomitant]
  12. VITAMIN D3 [Concomitant]
     Active Substance: CHOLECALCIFEROL
  13. NORTRIPTYLINE HCL 25MG CAP [Suspect]
     Active Substance: NORTRIPTYLINE HYDROCHLORIDE
     Indication: NECK PAIN
     Dosage: ?          QUANTITY:2 CAPSULE(S);?
     Route: 048
     Dates: start: 20100826, end: 20110131
  14. TUMS [Concomitant]
     Active Substance: CALCIUM CARBONATE
  15. POSTURE POSTURE NECK RELIEVE PUMP CERVICAL DISC HYDRATOR [Concomitant]
  16. HRT ESTROGEN [Concomitant]

REACTIONS (3)
  - Weight increased [None]
  - Obesity [None]
  - Metabolic disorder [None]

NARRATIVE: CASE EVENT DATE: 20101001
